FAERS Safety Report 13090436 (Version 1)
Quarter: 2017Q1

REPORT INFORMATION
  Report Type: Spontaneous
  Country: US (occurrence: US)
  Receive Date: 20170105
  Receipt Date: 20170105
  Transmission Date: 20170428
  Serious: No
  Sender: FDA-Public Use
  Company Number: US-ENDO PHARMACEUTICALS INC.-2016-004620

PATIENT
  Age: 49 Year
  Sex: Male
  Weight: 72.64 kg

DRUGS (1)
  1. TESTOSTERONE GEL [Suspect]
     Active Substance: TESTOSTERONE
     Indication: BLOOD TESTOSTERONE DECREASED
     Dosage: APPLY FIVE PUMPS TO THIGHS DAILY IN THE MORNING. (SPLIT 3 PUMPS ON ONE THIGH, AND TWO PUMPS ON THE O
     Route: 061
     Dates: start: 20160510

REACTIONS (4)
  - Asthenia [Not Recovered/Not Resolved]
  - Application site reaction [Not Recovered/Not Resolved]
  - Skin fissures [Not Recovered/Not Resolved]
  - Application site rash [Not Recovered/Not Resolved]

NARRATIVE: CASE EVENT DATE: 201605
